FAERS Safety Report 7952659-X (Version None)
Quarter: 2011Q4

REPORT INFORMATION
  Report Type: 
  Country: None (occurrence: None)
  Receive Date: 20111201
  Receipt Date: 20111128
  Transmission Date: 20120403
  Serious: No
  Sender: FDA-Public Use
  Company Number: US-ELI_LILLY_AND_COMPANY-US201111000082

PATIENT
  Sex: Female
  Weight: 59.864 kg

DRUGS (24)
  1. METHOTREXATE [Concomitant]
  2. PREDNISONE TAB [Concomitant]
  3. ALENDRONATE SODIUM [Concomitant]
  4. ADCIRCA [Suspect]
     Indication: PULMONARY HYPERTENSION
     Dosage: 20 MG, QD
     Route: 048
     Dates: start: 20111019, end: 20111027
  5. CALCIUM [Concomitant]
  6. DEXLANSOPRAZOLE [Concomitant]
  7. TYLENOL                                 /SCH/ [Concomitant]
  8. COMBIVENT [Concomitant]
  9. WELCHOL [Concomitant]
  10. HYDROXIZINE [Concomitant]
  11. IRON [Concomitant]
  12. CALCIUM CARBONATE [Concomitant]
  13. DUONEB [Concomitant]
  14. FUROSEMIDE [Concomitant]
  15. HYOSCYAMINE [Concomitant]
  16. LOMOTIL [Concomitant]
  17. CRESTOR [Concomitant]
  18. KLOR-CON [Concomitant]
  19. ASPIRIN [Concomitant]
  20. NEUROTIN                           /00949202/ [Concomitant]
  21. METOPROLOL [Concomitant]
  22. VALTREX [Concomitant]
  23. COZAAR [Concomitant]
  24. FOLIC ACID [Concomitant]

REACTIONS (2)
  - OCULAR HYPERAEMIA [None]
  - VISION BLURRED [None]
